FAERS Safety Report 12559406 (Version 1)
Quarter: 2016Q3

REPORT INFORMATION
  Report Type: Spontaneous
  Country: US (occurrence: None)
  Receive Date: 20160714
  Receipt Date: 20160714
  Transmission Date: 20161109
  Serious: Yes (Other)
  Sender: FDA-Public Use
  Company Number: None

PATIENT
  Age: 35 Year
  Sex: Male
  Weight: 83.92 kg

DRUGS (1)
  1. OXYCODONE/APAP [Suspect]
     Active Substance: ACETAMINOPHEN\OXYCODONE HYDROCHLORIDE
     Indication: PAIN
     Route: 048
     Dates: start: 20150721

REACTIONS (6)
  - Diarrhoea [None]
  - Migraine [None]
  - Vomiting [None]
  - Reaction to food additive [None]
  - Abdominal discomfort [None]
  - Nausea [None]
